FAERS Safety Report 6414017-9 (Version None)
Quarter: 2009Q4

REPORT INFORMATION
  Report Type: 
  Country: None (occurrence: None)
  Receive Date: 20091023
  Receipt Date: 20091023
  Transmission Date: 20100525
  Serious: Yes (Life-Threatening, Hospitalization)
  Sender: FDA-Public Use
  Company Number: None

PATIENT
  Age: 50 Year
  Sex: Female
  Weight: 90.7194 kg

DRUGS (1)
  1. LISINOPRIL [Suspect]
     Indication: HYPERTENSION
     Dosage: 10 MG 1 X DAY
     Dates: start: 20090205, end: 20091022

REACTIONS (9)
  - CEREBROVASCULAR ACCIDENT [None]
  - CONVULSION [None]
  - DIZZINESS [None]
  - DRY MOUTH [None]
  - ECONOMIC PROBLEM [None]
  - LOSS OF CONSCIOUSNESS [None]
  - PRESYNCOPE [None]
  - TEMPERATURE INTOLERANCE [None]
  - TINNITUS [None]
